FAERS Safety Report 15644892 (Version 3)
Quarter: 2018Q4

REPORT INFORMATION
  Report Type: Spontaneous
  Country: US (occurrence: US)
  Receive Date: 20181121
  Receipt Date: 20181127
  Transmission Date: 20190205
  Serious: Yes (Other)
  Sender: FDA-Public Use
  Company Number: US-PFIZER INC-2018474285

PATIENT
  Sex: Female

DRUGS (5)
  1. SOLU-CORTEF [Suspect]
     Active Substance: HYDROCORTISONE SODIUM SUCCINATE
     Dosage: 100 MG, WEEKLY
  2. SOLU-CORTEF [Suspect]
     Active Substance: HYDROCORTISONE SODIUM SUCCINATE
     Indication: ADDISON^S DISEASE
     Dosage: UNK, DAILY (DAILY INJECTIONS OF 30 TO 40 MG)
  3. CORTEF [Suspect]
     Active Substance: HYDROCORTISONE
     Indication: ADDISON^S DISEASE
     Dosage: UNK
  4. SOLU-CORTEF [Suspect]
     Active Substance: HYDROCORTISONE SODIUM SUCCINATE
     Indication: BLOOD DISORDER
     Dosage: 100 MG, WEEKLY
  5. CORTEF [Suspect]
     Active Substance: HYDROCORTISONE
     Indication: BLOOD DISORDER

REACTIONS (3)
  - Diverticulitis [Unknown]
  - Computerised tomogram abnormal [Unknown]
  - Coccydynia [Unknown]
